FAERS Safety Report 13958956 (Version 1)
Quarter: 2017Q3

REPORT INFORMATION
  Report Type: Spontaneous
  Country: US (occurrence: US)
  Receive Date: 20170911
  Receipt Date: 20170911
  Transmission Date: 20171128
  Serious: Yes (Disabling)
  Sender: FDA-Public Use
  Company Number: None

PATIENT
  Age: 61 Year
  Sex: Female
  Weight: 148.5 kg

DRUGS (9)
  1. MAXZIDE [Concomitant]
     Active Substance: HYDROCHLOROTHIAZIDE\TRIAMTERENE
  2. VITAMIN B [Concomitant]
     Active Substance: VITAMIN B
  3. TYLENOL [Concomitant]
     Active Substance: ACETAMINOPHEN
  4. LYRICA [Concomitant]
     Active Substance: PREGABALIN
  5. LASIX [Concomitant]
     Active Substance: FUROSEMIDE
  6. TUMERIC [Concomitant]
     Active Substance: HERBALS\TURMERIC
  7. VITAMIN D [Concomitant]
     Active Substance: CHOLECALCIFEROL
  8. LEVAQUIN [Suspect]
     Active Substance: LEVOFLOXACIN
     Indication: LYME DISEASE
     Route: 048
     Dates: start: 20161017, end: 20161018
  9. INSULIN 70/30 [Concomitant]
     Active Substance: INSULIN HUMAN

REACTIONS (5)
  - Gait disturbance [None]
  - Swelling [None]
  - Hypoaesthesia [None]
  - Arthralgia [None]
  - Hypersensitivity [None]

NARRATIVE: CASE EVENT DATE: 20161016
